FAERS Safety Report 4875752-7 (Version None)
Quarter: 2006Q1

REPORT INFORMATION
  Report Type: 
  Country: None (occurrence: None)
  Receive Date: 20060105
  Receipt Date: 20051222
  Transmission Date: 20060701
  Serious: Yes (Hospitalization)
  Sender: FDA-Public Use
  Company Number: 220607

PATIENT
  Sex: Female

DRUGS (1)
  1. AVASTIN (BEVACIZUMAB) PWDR + SOLVENT SOLN, 100MG [Suspect]
     Indication: COLORECTAL CANCER METASTATIC

REACTIONS (2)
  - CATHETER RELATED COMPLICATION [None]
  - SUPERIOR VENA CAVAL OCCLUSION [None]
